FAERS Safety Report 7628827-3 (Version None)
Quarter: 2011Q3

REPORT INFORMATION
  Report Type: 
  Country: None (occurrence: None)
  Receive Date: 20110722
  Receipt Date: 20110711
  Transmission Date: 20111222
  Serious: Yes (Hospitalization, Other)
  Sender: FDA-Public Use
  Company Number: US-UCBSA-033122

PATIENT
  Sex: Male
  Weight: 52.16 kg

DRUGS (2)
  1. CIMZIA [Suspect]
     Indication: CROHN'S DISEASE
     Dosage: INDUCTION DOSE: WEEK 0,2,4
     Route: 058
     Dates: start: 20110321, end: 20110418
  2. VITAMIN TAB [Concomitant]

REACTIONS (3)
  - CROHN'S DISEASE [None]
  - HAEMORRHAGE [None]
  - SMALL INTESTINAL OBSTRUCTION [None]
